FAERS Safety Report 20364150 (Version 3)
Quarter: 2022Q1

REPORT INFORMATION
  Report Type: Spontaneous
  Country: JP (occurrence: JP)
  Receive Date: 20220121
  Receipt Date: 20220315
  Transmission Date: 20220423
  Serious: Yes (Other)
  Sender: FDA-Public Use
  Company Number: JP-PFIZER INC-202200037228

PATIENT
  Age: 67 Year
  Sex: Male
  Weight: 68.4 kg

DRUGS (13)
  1. MYLOTARG [Suspect]
     Active Substance: GEMTUZUMAB OZOGAMICIN
     Indication: Acute myeloid leukaemia
     Dosage: 15 MG EVERY 14 DAYS (DAY 1, DAY15)
     Route: 041
     Dates: start: 20211117, end: 20211117
  2. CEFEPIME HYDROCHLORIDE [Concomitant]
     Active Substance: CEFEPIME HYDROCHLORIDE
     Dosage: 2 G, 2X/DAY
     Route: 041
     Dates: start: 20211115, end: 20211123
  3. AMMONIUM GLYCYRRHIZATE\GLYCINE\RACEMETHIONINE [Concomitant]
     Active Substance: AMMONIUM GLYCYRRHIZATE\GLYCINE\RACEMETHIONINE
     Dosage: 2 DF, 3X/DAY
     Route: 048
     Dates: end: 20211201
  4. CORTRIL [Concomitant]
     Active Substance: HYDROCORTISONE
     Dosage: 10 MG, 2X/DAY
     Route: 048
     Dates: end: 20211201
  5. ZEFIX [Concomitant]
     Active Substance: LAMIVUDINE
     Dosage: 100 MG, 1X/DAY
     Route: 048
     Dates: end: 20211201
  6. LEVOTHYROXINE SODIUM [Concomitant]
     Active Substance: LEVOTHYROXINE SODIUM
     Dosage: 75 UG, 1X/DAY
     Route: 048
     Dates: end: 20211201
  7. PREDONINE [Concomitant]
     Active Substance: PREDNISOLONE
     Dosage: 5 MG, 2X/DAY
     Route: 048
     Dates: end: 20211201
  8. URSODIOL [Concomitant]
     Active Substance: URSODIOL
     Dosage: 200 MG, 3X/DAY
     Route: 048
     Dates: end: 20211201
  9. NEXIUM [Concomitant]
     Active Substance: ESOMEPRAZOLE MAGNESIUM
     Dosage: 10 MG, 1X/DAY
     Route: 048
     Dates: end: 20211201
  10. FLUCONAZOLE [Concomitant]
     Active Substance: FLUCONAZOLE
     Dosage: 100 MG, 1X/DAY
     Route: 048
     Dates: end: 20211201
  11. VEMLIDY [Concomitant]
     Active Substance: TENOFOVIR ALAFENAMIDE FUMARATE
     Dosage: 25 MG, 1X/DAY
     Route: 048
     Dates: end: 20211201
  12. FENTANYL [Concomitant]
     Active Substance: FENTANYL
     Dosage: 12 MG, 1X/DAY
     Route: 062
     Dates: end: 20211206
  13. ABSTRAL [Concomitant]
     Active Substance: FENTANYL CITRATE
     Dosage: 100 UG, AS NEEDED
     Route: 060
     Dates: end: 20211129

REACTIONS (1)
  - Tumour lysis syndrome [Recovering/Resolving]

NARRATIVE: CASE EVENT DATE: 20211118
